FAERS Safety Report 8804618 (Version 1)
Quarter: 2012Q4

REPORT INFORMATION
  Report Type: 
  Country: BE (occurrence: BE)
  Receive Date: 20120924
  Receipt Date: 20120924
  Transmission Date: 20130627
  Serious: Yes (Hospitalization)
  Sender: FDA-Public Use
  Company Number: BE-ABBOTT-12P-013-0976211-00

PATIENT
  Age: 59 Year
  Sex: Female

DRUGS (4)
  1. SIPRALEXA [Suspect]
     Indication: DEPRESSION
     Route: 048
     Dates: start: 201204, end: 201207
  2. VITAMIN B [Concomitant]
     Indication: ALCOHOLISM
     Dosage: 2 tablets per day
     Route: 048
  3. SIMVASTATINE [Concomitant]
     Indication: PRODUCT USED FOR UNKNOWN INDICATION
     Route: 048
  4. ASAFLOW [Concomitant]
     Indication: TRANSIENT ISCHAEMIC ATTACK
     Route: 048
     Dates: start: 2010

REACTIONS (1)
  - Bradycardia [Recovered/Resolved]
